FAERS Safety Report 23399021 (Version 2)
Quarter: 2024Q1

REPORT INFORMATION
  Report Type: Report from Study
  Country: US (occurrence: US)
  Receive Date: 20240112
  Receipt Date: 20240125
  Transmission Date: 20240410
  Serious: No
  Sender: FDA-Public Use
  Company Number: US-ABBVIE-5380516

PATIENT
  Sex: Female

DRUGS (8)
  1. HUMIRA [Suspect]
     Active Substance: ADALIMUMAB
     Indication: Colitis ulcerative
     Dosage: FORM STRENGTH: 40 MILLIGRAM
     Route: 058
     Dates: start: 20230807
  2. HUMIRA [Suspect]
     Active Substance: ADALIMUMAB
     Dosage: FORM STRENGTH: 40 MG
     Route: 058
  3. VITAMIN B12 [Concomitant]
     Active Substance: CYANOCOBALAMIN
     Indication: Product used for unknown indication
  4. VITAMIN D [Concomitant]
     Active Substance: VITAMIN D NOS
     Indication: Product used for unknown indication
  5. XARELTO [Concomitant]
     Active Substance: RIVAROXABAN
     Indication: Anticoagulant therapy
  6. DILTIAZEM [Concomitant]
     Active Substance: DILTIAZEM
     Indication: Atrial fibrillation
  7. CALCIUM [Concomitant]
     Active Substance: CALCIUM
     Indication: Product used for unknown indication
  8. VITAMIN D3 [Concomitant]
     Active Substance: CHOLECALCIFEROL
     Indication: Product used for unknown indication

REACTIONS (1)
  - Heart rate decreased [Recovered/Resolved]

NARRATIVE: CASE EVENT DATE: 20230101
